FAERS Safety Report 24714035 (Version 3)
Quarter: 2025Q1

REPORT INFORMATION
  Report Type: Spontaneous
  Country: CO (occurrence: CO)
  Receive Date: 20241209
  Receipt Date: 20250306
  Transmission Date: 20250409
  Serious: No
  Sender: PFIZER
  Company Number: CO-PFIZER INC-PV202400158640

PATIENT

DRUGS (1)
  1. GENOTROPIN [Suspect]
     Active Substance: SOMATROPIN
     Dosage: 1.0 MG, DAILY
     Route: 058

REACTIONS (3)
  - Injection site erythema [Unknown]
  - Injection site pruritus [Unknown]
  - Injection site pain [Unknown]
